FAERS Safety Report 8138251-5 (Version None)
Quarter: 2012Q1

REPORT INFORMATION
  Report Type: 
  Country: None (occurrence: None)
  Receive Date: 20120215
  Receipt Date: 20120209
  Transmission Date: 20120608
  Serious: Yes (Other)
  Sender: FDA-Public Use
  Company Number: BR-ABBOTT-12P-020-0903509-00

PATIENT
  Sex: Male
  Weight: 85 kg

DRUGS (2)
  1. PIROXICAM + PREDNISONE + FOLIC ACID + RANITIDINE [Concomitant]
     Indication: RHEUMATOID ARTHRITIS
     Dosage: 20 MG + 5 MG + 1 MG + 150 MG, AT NIGHT
     Route: 048
  2. HUMIRA [Suspect]
     Indication: RHEUMATOID ARTHRITIS
     Route: 058

REACTIONS (1)
  - INFARCTION [None]
